FAERS Safety Report 6309092-6 (Version None)
Quarter: 2009Q3

REPORT INFORMATION
  Report Type: 
  Country: None (occurrence: None)
  Receive Date: 20090814
  Receipt Date: 20090810
  Transmission Date: 20100115
  Serious: Yes (Other)
  Sender: FDA-Public Use
  Company Number: GB-TEVA-205514ISR

PATIENT
  Sex: Female

DRUGS (2)
  1. CARBAMAZEPINE [Suspect]
     Route: 048
  2. CARBAMAZEPINE [Suspect]
     Route: 054

REACTIONS (1)
  - GASTROINTESTINAL PERFORATION [None]
